FAERS Safety Report 9678207 (Version 1)
Quarter: 2013Q4

REPORT INFORMATION
  Report Type: Spontaneous
  Country: US (occurrence: US)
  Receive Date: 20131108
  Receipt Date: 20131108
  Transmission Date: 20140711
  Serious: No
  Sender: FDA-Public Use
  Company Number: US-TEVA-439851USA

PATIENT
  Sex: Male

DRUGS (1)
  1. QNASL [Suspect]
     Route: 045

REACTIONS (2)
  - Sneezing [Unknown]
  - Device malfunction [Unknown]
